FAERS Safety Report 26095974 (Version 2)
Quarter: 2025Q4

REPORT INFORMATION
  Report Type: Report from Study
  Country: EU (occurrence: EU)
  Receive Date: 20251127
  Receipt Date: 20251215
  Transmission Date: 20260117
  Serious: Yes (Other)
  Sender: TAKEDA
  Company Number: EU-TAKEDA-2025TUS104140

PATIENT
  Age: 16 Month
  Sex: Female

DRUGS (3)
  1. HUMAN IMMUNOGLOBULIN G [Suspect]
     Active Substance: HUMAN IMMUNOGLOBULIN G
     Indication: Severe myoclonic epilepsy of infancy
     Dosage: 0.4 GRAM/KILOGRAM, MONTHLY
  2. VALPROIC ACID [Concomitant]
     Active Substance: VALPROIC ACID
     Indication: Seizure
     Dosage: UNK
  3. FENFLURAMINE [Concomitant]
     Active Substance: FENFLURAMINE
     Indication: Seizure
     Dosage: UNK

REACTIONS (3)
  - Febrile convulsion [Unknown]
  - Infusion related reaction [Unknown]
  - Off label use [Unknown]
